FAERS Safety Report 18332725 (Version 3)
Quarter: 2023Q4

REPORT INFORMATION
  Report Type: Report from Study
  Country: AU (occurrence: None)
  Receive Date: 20201001
  Receipt Date: 20231103
  Transmission Date: 20240110
  Serious: Yes (Hospitalization)
  Sender: FDA-Public Use
  Company Number: AU-ROCHE-2684564

PATIENT
  Age: 63 Year
  Sex: Female

DRUGS (20)
  1. ATEZOLIZUMAB [Suspect]
     Active Substance: ATEZOLIZUMAB
     Indication: Ovarian cancer
     Dosage: ON 06/AUG/2020, SHE RECEIVED LAST DOSE OF ATEZOLIZUMAB.
     Route: 041
     Dates: start: 20200805
  2. COBIMETINIB [Suspect]
     Active Substance: COBIMETINIB
     Indication: Ovarian cancer
     Dosage: ON 09/AUG/2020, SHE RECEIVED LAST DOSE (60 MG) OF COMBIMENTINIB.?EVERY DAY FOR 21 DAYS
     Route: 048
     Dates: start: 20200708
  3. COBIMETINIB [Suspect]
     Active Substance: COBIMETINIB
     Route: 048
     Dates: start: 20200810, end: 20200810
  4. BEVACIZUMAB [Suspect]
     Active Substance: BEVACIZUMAB
     Indication: Ovarian cancer
     Dosage: ON 06/AUG/2020, SHE RECEIVED LAST DOSE  OF BEVACIZUMAB.
     Route: 042
     Dates: start: 20200708
  5. ENOXAPARIN [Concomitant]
     Active Substance: ENOXAPARIN
     Indication: Thrombosis prophylaxis
     Route: 058
     Dates: start: 20200619
  6. ACETAMINOPHEN [Concomitant]
     Active Substance: ACETAMINOPHEN
     Indication: Abdominal pain upper
     Route: 048
     Dates: start: 20200622
  7. OXYCODONE [Concomitant]
     Active Substance: OXYCODONE
     Indication: Abdominal pain upper
     Route: 048
     Dates: start: 20200626
  8. FOLATE SODIUM [Concomitant]
     Active Substance: FOLATE SODIUM
     Indication: Anaemia
     Route: 048
     Dates: start: 20200612
  9. PROCHLORPERAZINE [Concomitant]
     Active Substance: PROCHLORPERAZINE
     Indication: Vertigo
     Route: 048
     Dates: start: 2009
  10. ATORVASTATIN [Concomitant]
     Active Substance: ATORVASTATIN
     Indication: Hyperlipidaemia
     Route: 048
     Dates: start: 2009
  11. MAGNESIUM [Concomitant]
     Active Substance: MAGNESIUM
     Indication: Hypomagnesaemia
     Route: 048
     Dates: start: 20200317
  12. CATAPRES [Concomitant]
     Active Substance: CLONIDINE HYDROCHLORIDE
     Indication: Hypertension
     Route: 048
     Dates: start: 2011
  13. METOCLOPRAMIDE [Concomitant]
     Active Substance: METOCLOPRAMIDE
     Indication: Nausea
     Route: 048
     Dates: start: 20200218
  14. PANTOPRAZOLE [Concomitant]
     Active Substance: PANTOPRAZOLE
     Indication: Dyspepsia
     Route: 048
     Dates: start: 2013
  15. IBUPROFEN [Concomitant]
     Active Substance: IBUPROFEN
     Dates: start: 20200809, end: 20200809
  16. OMNIPAQUE [Concomitant]
     Active Substance: IOHEXOL
     Dates: start: 20200809, end: 20200809
  17. CETIRIZINE HYDROCHLORIDE [Concomitant]
     Active Substance: CETIRIZINE HYDROCHLORIDE
     Dates: start: 20200809, end: 20200809
  18. CALCIUM CHLORIDE\POTASSIUM CHLORIDE\SODIUM CHLORIDE\SODIUM LACTATE [Concomitant]
     Active Substance: CALCIUM CHLORIDE\POTASSIUM CHLORIDE\SODIUM CHLORIDE\SODIUM LACTATE
     Route: 042
     Dates: start: 20200809, end: 20200810
  19. ONDANSETRON [Concomitant]
     Active Substance: ONDANSETRON
     Dates: start: 20200908, end: 20201008
  20. AMITRIPTYLINE [Concomitant]
     Active Substance: AMITRIPTYLINE
     Indication: Depression
     Route: 048
     Dates: start: 20200601

REACTIONS (1)
  - Non-cardiac chest pain [Recovered/Resolved]

NARRATIVE: CASE EVENT DATE: 20200809
